FAERS Safety Report 9564763 (Version 3)
Quarter: 2014Q4

REPORT INFORMATION
  Report Type: Report from Study
  Country: US (occurrence: US)
  Receive Date: 20130930
  Receipt Date: 20141126
  Transmission Date: 20150529
  Serious: Yes (Hospitalization)
  Sender: FDA-Public Use
  Company Number: US-JNJFOC-NSADSS2002027156

PATIENT
  Age: 2 Year
  Sex: Male
  Weight: 11.9 kg

DRUGS (28)
  1. CISAPRIDE [Suspect]
     Active Substance: CISAPRIDE
     Indication: OBSTRUCTION
     Route: 050
     Dates: start: 20020714, end: 20020809
  2. ACIDOPHILIS [Concomitant]
     Active Substance: LACTOBACILLUS ACIDOPHILUS
     Route: 065
  3. PULMICORT TURBUHALER [Concomitant]
     Active Substance: BUDESONIDE
     Indication: BRONCHIAL HYPERREACTIVITY
     Route: 065
     Dates: start: 20020114
  4. BACTRIM [Concomitant]
     Active Substance: SULFAMETHOXAZOLE\TRIMETHOPRIM
     Indication: DIARRHOEA
     Route: 065
     Dates: start: 20020502, end: 20020508
  5. LOTRIMIN [Concomitant]
     Active Substance: CLOTRIMAZOLE
     Indication: RASH
     Route: 003
     Dates: start: 20020301, end: 20020327
  6. CEFUROXIME. [Concomitant]
     Active Substance: CEFUROXIME
     Indication: PYREXIA
     Dosage: DOSE: 300.0 (UNITS UNSPECIFIED)
     Route: 041
     Dates: start: 20020317, end: 20020327
  7. PRILOSEC [Concomitant]
     Active Substance: OMEPRAZOLE MAGNESIUM
     Indication: GASTROOESOPHAGEAL REFLUX DISEASE
     Route: 065
     Dates: start: 20020107
  8. BENADRYL [Concomitant]
     Active Substance: DIPHENHYDRAMINE HYDROCHLORIDE
     Indication: PRURITUS
     Dosage: DOSE: 10.0 (UNITS UNSPECIFIED)??DOSAGE: AS NECESSARY
     Route: 041
  9. FLAGYL [Concomitant]
     Active Substance: METRONIDAZOLE\METRONIDAZOLE HYDROCHLORIDE
     Indication: DIARRHOEA
     Route: 065
     Dates: start: 20020418, end: 20020424
  10. PEDIAPRED [Concomitant]
     Active Substance: PREDNISOLONE SODIUM PHOSPHATE
     Indication: BRONCHIAL HYPERREACTIVITY
     Route: 065
     Dates: start: 20020216, end: 20020220
  11. NYSTATIN. [Concomitant]
     Active Substance: NYSTATIN
     Indication: RASH
     Route: 065
     Dates: start: 20020114, end: 20020225
  12. SIMETHICONE [Concomitant]
     Active Substance: DIMETHICONE\SILICON DIOXIDE\SIMETHICONE
     Route: 065
     Dates: end: 20020123
  13. VANCOMYCIN [Concomitant]
     Active Substance: VANCOMYCIN
     Indication: INFECTION
     Route: 041
     Dates: start: 20020304, end: 20020314
  14. KUZYME [Concomitant]
     Indication: DIARRHOEA
     Route: 065
     Dates: start: 20020129, end: 20020214
  15. GENTAMICIN. [Concomitant]
     Active Substance: GENTAMICIN
     Indication: BACTERIAL INFECTION
     Route: 065
     Dates: start: 20020214, end: 20020221
  16. REGLAN [Concomitant]
     Active Substance: METOCLOPRAMIDE HYDROCHLORIDE
     Indication: UNEVALUABLE EVENT
     Route: 065
     Dates: start: 20010718, end: 20010927
  17. CISAPRIDE [Suspect]
     Active Substance: CISAPRIDE
     Indication: OBSTRUCTION
     Route: 050
     Dates: start: 20020812
  18. FERROUS SULFATE [Concomitant]
     Active Substance: FERROUS SULFATE\FERROUS SULFATE, DRIED
     Indication: ANAEMIA
     Route: 065
  19. ALBUTEROL. [Concomitant]
     Active Substance: ALBUTEROL
     Indication: WHEEZING
     Dosage: AS NECESSARY
     Route: 065
     Dates: start: 20011022, end: 20011031
  20. CIPROFLOXACIN. [Concomitant]
     Active Substance: CIPROFLOXACIN
     Indication: CONJUNCTIVITIS
     Route: 047
     Dates: start: 20020401, end: 20020404
  21. NYSTATIN. [Concomitant]
     Active Substance: NYSTATIN
     Indication: RASH
     Route: 065
     Dates: start: 20011002, end: 20011004
  22. PREDNISONE. [Concomitant]
     Active Substance: PREDNISONE
     Indication: PYREXIA
     Route: 065
     Dates: start: 20011022, end: 20011027
  23. PREDNISONE. [Concomitant]
     Active Substance: PREDNISONE
     Indication: PYREXIA
     Route: 065
     Dates: start: 20020317, end: 20020323
  24. REGLAN [Concomitant]
     Active Substance: METOCLOPRAMIDE HYDROCHLORIDE
     Indication: UNEVALUABLE EVENT
     Route: 065
     Dates: end: 20010713
  25. NYSTATIN. [Concomitant]
     Active Substance: NYSTATIN
     Indication: RASH
     Route: 065
     Dates: start: 20020301, end: 20020327
  26. ALBUTEROL. [Concomitant]
     Active Substance: ALBUTEROL
     Indication: WHEEZING
     Route: 055
     Dates: start: 20020101
  27. PULMICORT TURBUHALER [Concomitant]
     Active Substance: BUDESONIDE
     Indication: BRONCHIAL HYPERREACTIVITY
     Route: 065
  28. FLAGYL [Concomitant]
     Active Substance: METRONIDAZOLE\METRONIDAZOLE HYDROCHLORIDE
     Indication: DIARRHOEA
     Route: 065
     Dates: start: 20020114, end: 20020121

REACTIONS (3)
  - Pruritus [Recovered/Resolved]
  - Lethargy [Recovered/Resolved]
  - Feeding disorder [Recovered/Resolved]

NARRATIVE: CASE EVENT DATE: 20020809
